FAERS Safety Report 14246584 (Version 1)
Quarter: 2017Q4

REPORT INFORMATION
  Report Type: Spontaneous
  Country: US (occurrence: US)
  Receive Date: 20171201
  Receipt Date: 20171201
  Transmission Date: 20180321
  Serious: Yes (Disabling, Other)
  Sender: FDA-Public Use
  Company Number: None

PATIENT
  Age: 59 Year
  Sex: Female
  Weight: 99 kg

DRUGS (5)
  1. THYROID [Concomitant]
     Active Substance: LEVOTHYROXINE\LIOTHYRONINE
  2. METOPORAL [Concomitant]
  3. CELEXA [Concomitant]
     Active Substance: CITALOPRAM HYDROBROMIDE
  4. TRIAMETRINE [Concomitant]
  5. FLUTICASONE. [Suspect]
     Active Substance: FLUTICASONE
     Indication: SINUS DISORDER
     Dosage: ?          OTHER STRENGTH:MCG;QUANTITY:1 SPRAY(S);OTHER ROUTE:NOSTRIL SPRAY?
     Dates: start: 20171103, end: 20171201

REACTIONS (4)
  - Deafness unilateral [None]
  - Vertigo [None]
  - Ear congestion [None]
  - Tinnitus [None]

NARRATIVE: CASE EVENT DATE: 20171124
